FAERS Safety Report 10085896 (Version 4)
Quarter: 2014Q2

REPORT INFORMATION
  Report Type: Report from Study
  Country: US (occurrence: US)
  Receive Date: 20140418
  Receipt Date: 20140624
  Transmission Date: 20141212
  Serious: Yes (Other)
  Sender: FDA-Public Use
  Company Number: US-SA-2014SA044136

PATIENT
  Age: 75 Year
  Sex: Male
  Weight: 84.82 kg

DRUGS (2)
  1. LANTUS [Suspect]
     Indication: DIABETES MELLITUS
     Dosage: DOSE:30 UNIT(S)
     Route: 065
     Dates: start: 201211
  2. LANTUS [Suspect]
     Indication: DIABETES MELLITUS
     Dosage: DOSE: 11-14UNITS
     Route: 065
     Dates: start: 20131215

REACTIONS (1)
  - Cardiac operation [Unknown]
